FAERS Safety Report 16477438 (Version 2)
Quarter: 2019Q2

REPORT INFORMATION
  Report Type: Spontaneous
  Country: JP (occurrence: JP)
  Receive Date: 20190626
  Receipt Date: 20190627
  Transmission Date: 20190711
  Serious: Yes (Death)
  Sender: FDA-Public Use
  Company Number: JP-ROCHE-2344488

PATIENT
  Age: 67 Year
  Sex: Male

DRUGS (8)
  1. OXALIPLATIN. [Concomitant]
     Active Substance: OXALIPLATIN
     Indication: OFF LABEL USE
  2. AVASTIN [Suspect]
     Active Substance: BEVACIZUMAB
     Indication: ADENOCARCINOMA OF COLON
     Dosage: UNCERTAIN DOSAGE AND DOSE INTERVAL UNCERTAINTY
     Route: 041
  3. AVASTIN [Suspect]
     Active Substance: BEVACIZUMAB
     Indication: OFF LABEL USE
  4. CALCIUM LEVOFOLINATE [Concomitant]
     Active Substance: LEVOLEUCOVORIN CALCIUM
     Indication: ADENOCARCINOMA OF COLON
     Dosage: UNCERTAIN DOSAGE AND DOSE INTERVAL UNCERTAINTY
     Route: 041
  5. FLUOROURACIL. [Concomitant]
     Active Substance: FLUOROURACIL
     Indication: ADENOCARCINOMA OF COLON
     Dosage: UNCERTAIN DOSAGE AND DOSE INTERVAL UNCERTAINTY
     Route: 040
  6. FLUOROURACIL. [Concomitant]
     Active Substance: FLUOROURACIL
     Indication: OFF LABEL USE
     Dosage: UNCERTAIN DOSAGE AND DOSE INTERVAL UNCERTAINTY
     Route: 041
  7. OXALIPLATIN. [Concomitant]
     Active Substance: OXALIPLATIN
     Indication: ADENOCARCINOMA OF COLON
     Dosage: UNCERTAIN DOSAGE AND DOSE INTERVAL UNCERTAINTY
     Route: 041
  8. CALCIUM LEVOFOLINATE [Concomitant]
     Active Substance: LEVOLEUCOVORIN CALCIUM
     Indication: OFF LABEL USE

REACTIONS (3)
  - Adenocarcinoma of colon [Fatal]
  - Intentional product use issue [Unknown]
  - Off label use [Unknown]
